FAERS Safety Report 5627620-0 (Version None)
Quarter: 2008Q1

REPORT INFORMATION
  Report Type: 
  Country: None (occurrence: None)
  Receive Date: 20080214
  Receipt Date: 20080214
  Transmission Date: 20080703
  Serious: Yes (Other)
  Sender: FDA-Public Use
  Company Number: None

PATIENT
  Age: 55 Year
  Sex: Female
  Weight: 69.8539 kg

DRUGS (3)
  1. PREVACID [Suspect]
     Indication: OESOPHAGEAL DISORDER
     Dosage: 30 MG ? PO
     Route: 048
     Dates: start: 20020102, end: 20020220
  2. PREVACID [Suspect]
     Indication: SINUSITIS
     Dosage: 30 MG ? PO
     Route: 048
     Dates: start: 20020102, end: 20020220
  3. CARAFATE [Concomitant]

REACTIONS (7)
  - ABNORMAL BEHAVIOUR [None]
  - APATHY [None]
  - BRADYPHRENIA [None]
  - COGNITIVE DISORDER [None]
  - DISTURBANCE IN ATTENTION [None]
  - HYPERSOMNIA [None]
  - IMPAIRED WORK ABILITY [None]
